FAERS Safety Report 17027658 (Version 3)
Quarter: 2019Q4

REPORT INFORMATION
  Report Type: Spontaneous
  Country: US (occurrence: US)
  Receive Date: 20191113
  Receipt Date: 20191125
  Transmission Date: 20200122
  Serious: Yes (Hospitalization, Other)
  Sender: FDA-Public Use
  Company Number: US-SA-2019SA310910

PATIENT
  Age: 65 Year
  Sex: Female

DRUGS (15)
  1. OMNIPAQUE [Concomitant]
     Active Substance: IOHEXOL
     Dosage: RADIO CONTRAST USED WAS IOHEXOL (OMNIPAQUE 350
  2. GLYCERYL TRINITRATE [Concomitant]
     Active Substance: NITROGLYCERIN
     Route: 042
  3. ACETYLSALICYLIC ACID [Concomitant]
     Active Substance: ASPIRIN
     Indication: CHEST PAIN
     Dosage: 81 MG, QD
  4. HYDROCHLOROTHIAZIDE. [Concomitant]
     Active Substance: HYDROCHLOROTHIAZIDE
     Dosage: UNK
  5. PLAVIX [Concomitant]
     Active Substance: CLOPIDOGREL BISULFATE
     Indication: ACUTE CORONARY SYNDROME
     Dosage: UNK
  6. MIDAZOLAM [Concomitant]
     Active Substance: MIDAZOLAM HYDROCHLORIDE
     Indication: SEDATION
     Dosage: UNK
  7. NITROGLYCERIN. [Concomitant]
     Active Substance: NITROGLYCERIN
     Indication: SEDATION
     Dosage: UNK
  8. METFORMIN [Concomitant]
     Active Substance: METFORMIN HYDROCHLORIDE
     Dosage: UNK
  9. RANITIDINE. [Concomitant]
     Active Substance: RANITIDINE
     Dosage: UNK
  10. PROPRANOLOL HYDROCHLORIDE. [Concomitant]
     Active Substance: PROPRANOLOL HYDROCHLORIDE
     Dosage: UNK
  11. ACETAMINOPHEN. [Concomitant]
     Active Substance: ACETAMINOPHEN
     Indication: HEADACHE
     Dosage: ORAL/ IV
  12. DOCUSATE;SENNA [Concomitant]
  13. MORPHINE [Concomitant]
     Active Substance: MORPHINE
     Indication: CONSTIPATION
     Route: 042
  14. HEPARIN [Suspect]
     Active Substance: HEPARIN SODIUM
     Indication: ACUTE CORONARY SYNDROME
     Dosage: UNK
     Route: 042
  15. FENTANYL. [Concomitant]
     Active Substance: FENTANYL
     Indication: ANALGESIC THERAPY
     Dosage: UNK

REACTIONS (12)
  - Pituitary apoplexy [Recovering/Resolving]
  - IIIrd nerve paralysis [Recovering/Resolving]
  - Intracranial mass [Recovered/Resolved]
  - Eyelid ptosis [Recovering/Resolving]
  - Gaze palsy [Recovering/Resolving]
  - Pyrexia [Recovering/Resolving]
  - Headache [Recovering/Resolving]
  - Mydriasis [Recovering/Resolving]
  - Pupils unequal [Recovering/Resolving]
  - Haemorrhage [Recovered/Resolved]
  - Cataract [Recovering/Resolving]
  - Leukocytosis [Recovered/Resolved]
